FAERS Safety Report 13658989 (Version 1)
Quarter: 2017Q2

REPORT INFORMATION
  Report Type: Report from Study
  Country: US (occurrence: US)
  Receive Date: 20170616
  Receipt Date: 20170616
  Transmission Date: 20170830
  Serious: Yes (Death)
  Sender: FDA-Public Use
  Company Number: US-TORRENT-00003001

PATIENT
  Age: 35 Year
  Sex: Male

DRUGS (4)
  1. TIZANIDINE HYDROCHLORIDE. [Suspect]
     Active Substance: TIZANIDINE HYDROCHLORIDE
  2. TRAZODONE HYDROCHLORIDE. [Suspect]
     Active Substance: TRAZODONE HYDROCHLORIDE
  3. ACETAMINOPHEN/OXYCODONE [Suspect]
     Active Substance: ACETAMINOPHEN\OXYCODONE HYDROCHLORIDE
  4. CAFFEINE. [Suspect]
     Active Substance: CAFFEINE

REACTIONS (3)
  - Cardio-respiratory arrest [Fatal]
  - Completed suicide [Fatal]
  - Toxicity to various agents [Fatal]
